FAERS Safety Report 6046942-5 (Version None)
Quarter: 2009Q1

REPORT INFORMATION
  Report Type: 
  Country: None (occurrence: None)
  Receive Date: 20090122
  Receipt Date: 20090114
  Transmission Date: 20090719
  Serious: Yes (Life-Threatening, Hospitalization)
  Sender: FDA-Public Use
  Company Number: JP-JNJFOC-20081103693

PATIENT
  Sex: Male

DRUGS (5)
  1. LEVOFLOXACIN [Suspect]
     Indication: PNEUMONIA
     Route: 048
  2. BERAPROST SODIUM [Suspect]
     Indication: ARTERIOSCLEROSIS OBLITERANS
     Dosage: 5 YRS
     Route: 048
  3. WARFARIN POTASSIUM [Concomitant]
     Indication: ARRHYTHMIA
     Dosage: 5 YEARS
     Route: 048
  4. PLAVIX [Concomitant]
     Indication: ARRHYTHMIA
     Dosage: 5 YRS
     Route: 048
  5. ZYLORIC [Concomitant]
     Indication: HYPERURICAEMIA
     Route: 048

REACTIONS (1)
  - INTERSTITIAL LUNG DISEASE [None]
